FAERS Safety Report 10284771 (Version 2)
Quarter: 2014Q3

REPORT INFORMATION
  Report Type: Spontaneous
  Country: IT (occurrence: IT)
  Receive Date: 20140708
  Receipt Date: 20140911
  Transmission Date: 20150326
  Serious: Yes (Hospitalization)
  Sender: FDA-Public Use
  Company Number: IT-BRISTOL-MYERS SQUIBB COMPANY-21130471

PATIENT
  Age: 79 Year
  Sex: Male

DRUGS (2)
  1. COUMADIN [Suspect]
     Active Substance: WARFARIN SODIUM
     Indication: ATRIAL FIBRILLATION
     Dosage: INT ON 12SEP2013,17JUN2014
     Route: 048
     Dates: start: 20110901, end: 20140617
  2. AMIODARONE [Concomitant]
     Active Substance: AMIODARONE
     Dosage: TABS
     Route: 048

REACTIONS (3)
  - Cerebral haematoma [Not Recovered/Not Resolved]
  - Subdural haematoma [Recovered/Resolved]
  - Fall [Unknown]

NARRATIVE: CASE EVENT DATE: 20130913
